FAERS Safety Report 10504619 (Version 1)
Quarter: 2014Q4

REPORT INFORMATION
  Report Type: Spontaneous
  Country: JP (occurrence: None)
  Receive Date: 20141006
  Receipt Date: 20141006
  Transmission Date: 20150528
  Serious: Yes (Death, Other)
  Sender: FDA-Public Use
  Company Number: 2014SCAL000131

PATIENT
  Sex: Male
  Weight: 68.5 kg

DRUGS (7)
  1. SODIUM VALPROATE (VALPROATE SODIUM) [Concomitant]
     Active Substance: VALPROATE SODIUM
  2. FLUVOXAMINE MALEATE. [Suspect]
     Active Substance: FLUVOXAMINE MALEATE
     Indication: PRODUCT USED FOR UNKNOWN INDICATION
  3. BROTIZOLAM (BROTIZOLAM) [Concomitant]
  4. FLUNITRAZEPAM (FLUNITRAZEPAM) [Concomitant]
  5. LITHIUM CARBONATE. [Suspect]
     Active Substance: LITHIUM CARBONATE
     Indication: PRODUCT USED FOR UNKNOWN INDICATION
  6. ZOPICLONE (ZOPICLONE) [Concomitant]
     Active Substance: ZOPICLONE
  7. DIAZEPAM (DIAZEPAM) [Concomitant]
     Active Substance: DIAZEPAM

REACTIONS (9)
  - Neuroleptic malignant syndrome [None]
  - Body temperature increased [None]
  - Hyperhidrosis [None]
  - Pulmonary oedema [None]
  - Myocardial haemorrhage [None]
  - Intentional overdose [None]
  - Completed suicide [None]
  - Cardio-respiratory arrest [None]
  - Brain oedema [None]
